FAERS Safety Report 17561006 (Version 2)
Quarter: 2022Q4

REPORT INFORMATION
  Report Type: Spontaneous
  Country: US (occurrence: US)
  Receive Date: 20200319
  Receipt Date: 20221114
  Transmission Date: 20230113
  Serious: Yes (Other)
  Sender: FDA-Public Use
  Company Number: US-PFIZER INC-2020117655

PATIENT
  Age: 69 Year
  Sex: Male
  Weight: 81.65 kg

DRUGS (1)
  1. VINCRISTINE SULFATE [Suspect]
     Active Substance: VINCRISTINE SULFATE
     Indication: Chemotherapy
     Dosage: UNK
     Dates: start: 197704

REACTIONS (6)
  - Neuropathy peripheral [Not Recovered/Not Resolved]
  - Diabetes mellitus [Unknown]
  - Balance disorder [Unknown]
  - Limb injury [Unknown]
  - Insomnia [Unknown]
  - Mobility decreased [Unknown]
